FAERS Safety Report 17324162 (Version 1)
Quarter: 2020Q1

REPORT INFORMATION
  Report Type: Report from Study
  Country: IT (occurrence: IT)
  Receive Date: 20200127
  Receipt Date: 20200127
  Transmission Date: 20200409
  Serious: Yes (Hospitalization)
  Sender: FDA-Public Use
  Company Number: IT-ACCORD-170735

PATIENT
  Age: 44 Year
  Sex: Female

DRUGS (6)
  1. FUROSEMIDE. [Suspect]
     Active Substance: FUROSEMIDE
     Indication: HYPERTENSION
     Route: 048
     Dates: end: 20191231
  2. ESOMEPRAZOLE. [Concomitant]
     Active Substance: ESOMEPRAZOLE MAGNESIUM
  3. MICARDIS [Concomitant]
     Active Substance: TELMISARTAN
     Dosage: 40 MG TABLETS
  4. ALPRAZOLAM. [Concomitant]
     Active Substance: ALPRAZOLAM
  5. PLEGRIDY [Concomitant]
     Active Substance: PEGINTERFERON BETA-1A
     Dosage: 125 MICROGRAMS SOLUTION FOR INJECTION IN PRE-FILLED SYRINGE
  6. STILNOX [Concomitant]
     Active Substance: ZOLPIDEM TARTRATE

REACTIONS (3)
  - Hypotension [Recovering/Resolving]
  - Loss of consciousness [Recovering/Resolving]
  - Syncope [Recovering/Resolving]

NARRATIVE: CASE EVENT DATE: 20191218
